FAERS Safety Report 6826909-7 (Version None)
Quarter: 2010Q3

REPORT INFORMATION
  Report Type: 
  Country: None (occurrence: None)
  Receive Date: 20100709
  Receipt Date: 20100630
  Transmission Date: 20110219
  Serious: Yes (Hospitalization)
  Sender: FDA-Public Use
  Company Number: JP-ROCHE-713717

PATIENT
  Sex: Female
  Weight: 50 kg

DRUGS (8)
  1. TOCILIZUMAB [Suspect]
     Indication: RHEUMATOID ARTHRITIS
     Route: 041
     Dates: start: 20090319, end: 20090319
  2. RHEUMATREX [Concomitant]
     Route: 048
  3. PREDONINE [Concomitant]
     Route: 048
  4. FOLIAMIN [Concomitant]
     Route: 048
  5. LOXONIN [Concomitant]
     Route: 048
  6. GASTER D [Concomitant]
     Route: 048
  7. BONALON [Concomitant]
     Route: 048
  8. ONEALFA [Concomitant]
     Route: 048

REACTIONS (1)
  - MALAISE [None]
